FAERS Safety Report 7794194-8 (Version None)
Quarter: 2011Q4

REPORT INFORMATION
  Report Type: 
  Country: None (occurrence: None)
  Receive Date: 20111004
  Receipt Date: 20110928
  Transmission Date: 20120403
  Serious: Yes (Hospitalization)
  Sender: FDA-Public Use
  Company Number: CA-AMGEN-CANCT2011029961

PATIENT
  Age: 63 Year
  Sex: Female
  Weight: 88.8 kg

DRUGS (20)
  1. FLUOROURACIL [Concomitant]
     Indication: COLORECTAL CANCER
     Dosage: UNK
     Dates: start: 20110407, end: 20110601
  2. ATIVAN [Concomitant]
     Indication: ANXIETY
     Dosage: 1 MG, UNK
     Route: 060
     Dates: start: 20110420, end: 20110421
  3. MAGNESIUM [Concomitant]
     Indication: HYPOMAGNESAEMIA
     Dosage: 30 ML, UNK
     Route: 048
     Dates: start: 20110503
  4. METOCLOPRAMIDE [Concomitant]
     Indication: NAUSEA
     Dosage: 10 MG, UNK
     Route: 050
     Dates: start: 20110424
  5. LEUCOVORIN CALCIUM [Concomitant]
     Indication: COLORECTAL CANCER
     Dosage: UNK
     Dates: start: 20110407, end: 20110601
  6. COLACE [Concomitant]
     Indication: CONSTIPATION
     Dosage: 100 MG, UNK
     Route: 048
     Dates: start: 20110409, end: 20110410
  7. ZANTAC [Concomitant]
     Indication: GASTROOESOPHAGEAL REFLUX DISEASE
     Dosage: 150 MG, UNK
     Route: 048
     Dates: start: 20110430, end: 20110610
  8. PANITUMUMAB [Suspect]
     Indication: COLORECTAL CANCER
     Dosage: 533 MG, UNK
  9. IMODIUM [Concomitant]
     Indication: DIARRHOEA
     Dosage: 2 MG, UNK
     Route: 048
     Dates: start: 20110501, end: 20110614
  10. ONDANSETRON [Concomitant]
     Indication: NAUSEA
     Dosage: 8 MG, UNK
     Route: 050
     Dates: start: 20110407
  11. DOXYCYCLINE [Concomitant]
     Indication: RASH
     Dosage: 100 MG, UNK
     Route: 048
     Dates: start: 20110408, end: 20110610
  12. DEXAMETHASONE [Concomitant]
     Indication: NAUSEA
     Dosage: UNK
     Dates: start: 20110407
  13. XYLOCAINE [Concomitant]
     Indication: STOMATITIS
     Dosage: UNK
     Route: 048
     Dates: start: 20110503, end: 20110512
  14. NYSTATIN [Concomitant]
     Indication: STOMATITIS
     Dosage: UNK
     Dates: start: 20110503, end: 20110512
  15. MEDROL [Concomitant]
     Indication: CONTRAST MEDIA ALLERGY
     Dosage: 40 MG, UNK
     Route: 048
     Dates: start: 20110524, end: 20110524
  16. HYDRAPHASE XL [Concomitant]
     Indication: LIP DRY
     Dosage: UNK
     Route: 061
     Dates: start: 20110503, end: 20110610
  17. HYDROCORTISONE [Concomitant]
     Indication: RASH
     Dosage: UNK
     Route: 061
     Dates: start: 20110406
  18. OXALIPLATIN [Concomitant]
     Indication: COLORECTAL CANCER
     Dosage: UNK
     Dates: start: 20110407, end: 20110601
  19. CALCIUM CARBONATE [Concomitant]
     Indication: GASTROOESOPHAGEAL REFLUX DISEASE
     Dosage: UNK
     Route: 048
     Dates: start: 20040615, end: 20110430
  20. REACTINE [Concomitant]
     Indication: CONTRAST MEDIA ALLERGY
     Dosage: 20 MG, UNK
     Route: 048
     Dates: start: 20110524, end: 20110524

REACTIONS (4)
  - DEHYDRATION [None]
  - THROMBOSIS IN DEVICE [None]
  - MELAENA [None]
  - FATIGUE [None]
